FAERS Safety Report 4989968-2 (Version None)
Quarter: 2006Q2

REPORT INFORMATION
  Report Type: 
  Country: None (occurrence: None)
  Receive Date: 20060428
  Receipt Date: 20060421
  Transmission Date: 20061013
  Serious: Yes (Other)
  Sender: FDA-Public Use
  Company Number: DE200604003471

PATIENT
  Age: 38 Year
  Sex: Female

DRUGS (3)
  1. CYMBALTA [Suspect]
     Indication: DEPRESSION
     Dosage: 60 MG, DAILY (1/D), ORAL
     Route: 048
     Dates: start: 20060420, end: 20060420
  2. SULPIRIDE (SULPIRIDE) [Concomitant]
  3. DIAZEPAM [Concomitant]

REACTIONS (5)
  - DYSPHAGIA [None]
  - MUSCLE SPASMS [None]
  - MUSCLE TWITCHING [None]
  - PARALYSIS [None]
  - TONGUE DISORDER [None]
